FAERS Safety Report 9086701 (Version 1)
Quarter: 2013Q1

REPORT INFORMATION
  Report Type: Report from Study
  Country: US (occurrence: US)
  Receive Date: 20130131
  Receipt Date: 20130131
  Transmission Date: 20140127
  Serious: No
  Sender: FDA-Public Use
  Company Number: US-ABBOTT-12P-163-0995523-00

PATIENT
  Sex: Female

DRUGS (2)
  1. HUMIRA [Suspect]
     Indication: PSORIASIS
     Dosage: ON DAY ONE
     Route: 058
     Dates: start: 20120926, end: 20120926
  2. HUMIRA [Suspect]
     Dosage: ON DAY EIGHT AND TWENTY TWO
     Route: 058

REACTIONS (3)
  - Fatigue [Unknown]
  - Headache [Unknown]
  - Visual impairment [Not Recovered/Not Resolved]
